FAERS Safety Report 6972972-2 (Version None)
Quarter: 2010Q3

REPORT INFORMATION
  Report Type: 
  Country: None (occurrence: None)
  Receive Date: 20100909
  Receipt Date: 20100715
  Transmission Date: 20110219
  Serious: No
  Sender: FDA-Public Use
  Company Number: US-KINGPHARMUSA00001-K201000919

PATIENT
  Sex: Female

DRUGS (2)
  1. EMBEDA [Suspect]
     Indication: BACK PAIN
     Dosage: 20 MG, EVERY 12 HOURS
     Route: 048
     Dates: start: 20100611, end: 20100623
  2. MORPHINE [Concomitant]
     Indication: BACK PAIN
     Dosage: UNK
     Route: 048

REACTIONS (8)
  - CHILLS [None]
  - HEADACHE [None]
  - HOT FLUSH [None]
  - HYPERHIDROSIS [None]
  - MALAISE [None]
  - MYALGIA [None]
  - NAUSEA [None]
  - VOMITING PROJECTILE [None]
